FAERS Safety Report 4368339-6 (Version None)
Quarter: 2004Q2

REPORT INFORMATION
  Report Type: 
  Country: None (occurrence: None)
  Receive Date: 20040525
  Receipt Date: 20040517
  Transmission Date: 20050107
  Serious: Yes (Life-Threatening, Hospitalization)
  Sender: FDA-Public Use
  Company Number: STA-AE-04-MTX-180

PATIENT
  Age: 81 Year
  Sex: Female

DRUGS (2)
  1. METHOTREXATE [Suspect]
     Indication: POLYARTHRITIS
     Dosage: 10MG 1X PER WK, ORAL
     Route: 048
     Dates: end: 20040301
  2. CORTISONE (CORTISONE) [Concomitant]

REACTIONS (1)
  - CONVULSION [None]
